FAERS Safety Report 7546682-7 (Version None)
Quarter: 2011Q2

REPORT INFORMATION
  Report Type: 
  Country: None (occurrence: None)
  Receive Date: 20110524
  Receipt Date: 20110221
  Transmission Date: 20111010
  Serious: No
  Sender: FDA-Public Use
  Company Number: 027928

PATIENT
  Sex: Female
  Weight: 220 kg

DRUGS (5)
  1. PURINETHOL [Concomitant]
  2. MESALAMINE [Concomitant]
  3. PREDNISONE [Concomitant]
  4. CONTRACEPTIVES NOS [Concomitant]
  5. CIMZIA [Suspect]
     Indication: CROHN'S DISEASE
     Dosage: (400 MG 1X/28 DAYS SUBCUTANEOUS)
     Route: 058
     Dates: start: 20100301

REACTIONS (8)
  - ABDOMINAL DISTENSION [None]
  - CONSTIPATION [None]
  - MUSCULOSKELETAL STIFFNESS [None]
  - ARTHRALGIA [None]
  - JAUNDICE [None]
  - MUCOUS STOOLS [None]
  - FATIGUE [None]
  - HAEMATOCHEZIA [None]
